FAERS Safety Report 19369650 (Version 1)
Quarter: 2021Q2

REPORT INFORMATION
  Report Type: Report from Study
  Country: None (occurrence: CO)
  Receive Date: 20210602
  Receipt Date: 20210602
  Transmission Date: 20210717
  Serious: Yes (Other)
  Sender: FDA-Public Use
  Company Number: CO-ABBVIE-21K-036-3865508-00

PATIENT
  Age: 52 Year
  Sex: Female
  Weight: 45 kg

DRUGS (3)
  1. HUMIRA [Suspect]
     Active Substance: ADALIMUMAB
     Route: 058
     Dates: start: 2021
  2. HUMIRA [Suspect]
     Active Substance: ADALIMUMAB
     Indication: RHEUMATOID ARTHRITIS
     Route: 058
     Dates: end: 20210317
  3. HUMIRA [Suspect]
     Active Substance: ADALIMUMAB
     Indication: RHEUMATOID ARTHRITIS
     Route: 058
     Dates: start: 20130107

REACTIONS (10)
  - Tooth injury [Recovering/Resolving]
  - Dental discomfort [Recovering/Resolving]
  - Dental caries [Recovering/Resolving]
  - Toothache [Recovering/Resolving]
  - Arthralgia [Recovering/Resolving]
  - Tooth fracture [Unknown]
  - Toothache [Recovering/Resolving]
  - Toothache [Recovering/Resolving]
  - Tooth disorder [Recovering/Resolving]
  - Head discomfort [Recovering/Resolving]

NARRATIVE: CASE EVENT DATE: 2016
